FAERS Safety Report 25135901 (Version 1)
Quarter: 2025Q1

REPORT INFORMATION
  Report Type: Spontaneous
  Country: US (occurrence: None)
  Receive Date: 20250327
  Receipt Date: 20250327
  Transmission Date: 20250409
  Serious: Yes (Other)
  Sender: FDA-CTU
  Company Number: None

PATIENT
  Age: 25 Year
  Sex: Male
  Weight: 85 kg

DRUGS (3)
  1. BRIDION [Suspect]
     Active Substance: SUGAMMADEX SODIUM
     Indication: Neuromuscular blockade reversal
     Route: 040
  2. ROCURONIUM BROMIDE [Concomitant]
     Active Substance: ROCURONIUM BROMIDE
  3. PROPOFOL [Concomitant]
     Active Substance: PROPOFOL

REACTIONS (2)
  - Bradycardia [None]
  - Cardiac arrest [None]

NARRATIVE: CASE EVENT DATE: 20250327
